FAERS Safety Report 5044378-7 (Version None)
Quarter: 2006Q2

REPORT INFORMATION
  Report Type: 
  Country: None (occurrence: None)
  Receive Date: 20060629
  Receipt Date: 20060619
  Transmission Date: 20061013
  Serious: Yes (Other)
  Sender: FDA-Public Use
  Company Number: B0428771A

PATIENT
  Age: 12 Year
  Sex: Female

DRUGS (10)
  1. ADVAIR UNSPECIFIED INHALER DEVICE (FLUTICASONE+SALMETEROL) [Suspect]
     Indication: HIV INFECTION
     Dosage: TWICE PER DAY/
  2. DEXAMETHASONE TAB [Concomitant]
  3. COMBIVIR [Concomitant]
  4. FLUCONAZOLE [Concomitant]
  5. SALBUTAMOL SULPHATE [Concomitant]
  6. MONTELUKAST SODIUM [Concomitant]
  7. AZITHROMYCIN [Concomitant]
  8. CO-TRIMOXAZOLE [Concomitant]
  9. PREDNISOLONE [Concomitant]
  10. EFAVIRENZ [Concomitant]

REACTIONS (5)
  - ADRENAL INSUFFICIENCY [None]
  - ADRENAL SUPPRESSION [None]
  - CUSHING'S SYNDROME [None]
  - DRUG INTERACTION [None]
  - PNEUMOCYSTIS JIROVECI PNEUMONIA [None]
